FAERS Safety Report 20198152 (Version 1)
Quarter: 2021Q4

REPORT INFORMATION
  Report Type: Spontaneous
  Country: US (occurrence: US)
  Receive Date: 20211217
  Receipt Date: 20211217
  Transmission Date: 20220303
  Serious: Yes (Death, Hospitalization, Other)
  Sender: FDA-Public Use
  Company Number: US-GLAXOSMITHKLINE-US2021256115

PATIENT
  Age: 70 Year
  Sex: Male

DRUGS (1)
  1. MEPRON [Suspect]
     Active Substance: ATOVAQUONE
     Indication: Pneumocentesis
     Dosage: UNK, 750 MG/5ML
     Dates: start: 202011, end: 20211213

REACTIONS (2)
  - Lung operation [Fatal]
  - Infection [Fatal]

NARRATIVE: CASE EVENT DATE: 20211213
